FAERS Safety Report 7293170-1 (Version None)
Quarter: 2011Q1

REPORT INFORMATION
  Report Type: 
  Country: None (occurrence: None)
  Receive Date: 20110215
  Receipt Date: 20110203
  Transmission Date: 20110831
  Serious: Yes (Hospitalization)
  Sender: FDA-Public Use
  Company Number: US-ACTELION-A-US2011-44652

PATIENT

DRUGS (1)
  1. TRACLEER [Suspect]
     Indication: PULMONARY CONGESTION
     Dosage: UNK
     Route: 048
     Dates: start: 20110103

REACTIONS (2)
  - HYPONATRAEMIA [None]
  - DYSPNOEA [None]
